FAERS Safety Report 6453966-2 (Version None)
Quarter: 2009Q4

REPORT INFORMATION
  Report Type: 
  Country: None (occurrence: None)
  Receive Date: 20091117
  Receipt Date: 20091106
  Transmission Date: 20100525
  Serious: Yes (Hospitalization, Other)
  Sender: FDA-Public Use
  Company Number: A-US2009-27844

PATIENT
  Age: 52 Year
  Sex: Female
  Weight: 107.9 kg

DRUGS (3)
  1. TRACLEER [Suspect]
     Indication: PULMONARY ARTERIAL HYPERTENSION
     Dosage: 125 MG, BID, ORAL ; ORAL
     Route: 048
     Dates: start: 20090501
  2. TRACLEER [Suspect]
     Indication: PULMONARY ARTERIAL HYPERTENSION
     Dosage: 125 MG, BID, ORAL ; ORAL
     Route: 048
     Dates: start: 20091102
  3. IRON (IRON) [Concomitant]

REACTIONS (6)
  - DYSPNOEA [None]
  - GAIT DISTURBANCE [None]
  - GASTROINTESTINAL HAEMORRHAGE [None]
  - IRON DEFICIENCY ANAEMIA [None]
  - RESPIRATORY FAILURE [None]
  - TRANSFUSION-RELATED ACUTE LUNG INJURY [None]
